FAERS Safety Report 6069257-8 (Version None)
Quarter: 2009Q1

REPORT INFORMATION
  Report Type: 
  Country: None (occurrence: None)
  Receive Date: 20090206
  Receipt Date: 20090130
  Transmission Date: 20090719
  Serious: Yes (Hospitalization)
  Sender: FDA-Public Use
  Company Number: JP-SANOFI-SYNTHELABO-A01200815930

PATIENT
  Sex: Male
  Weight: 57 kg

DRUGS (8)
  1. ENALAPRIL MALEATE [Concomitant]
     Indication: GASTRIC ULCER
     Route: 048
     Dates: start: 20080514
  2. PLAVIX [Suspect]
     Indication: MYOCARDIAL ISCHAEMIA
     Route: 048
     Dates: start: 20080602
  3. GASTER [Concomitant]
     Indication: GASTRIC ULCER
     Route: 048
     Dates: start: 20080514
  4. AMARYL [Concomitant]
     Indication: DIABETES MELLITUS
     Route: 048
     Dates: start: 20080717
  5. ASPIRIN [Concomitant]
     Indication: MYOCARDIAL ISCHAEMIA
     Route: 048
     Dates: start: 20080514
  6. ZYLORIC [Concomitant]
     Indication: HYPERURICAEMIA
     Route: 048
     Dates: start: 20080623
  7. LIPITOR [Concomitant]
     Indication: GASTRIC ULCER
     Route: 048
     Dates: start: 20080514
  8. NU-LOTAN [Concomitant]
     Indication: GASTRIC ULCER
     Route: 048
     Dates: start: 20080522

REACTIONS (2)
  - ILIAC ARTERY STENOSIS [None]
  - INTERSTITIAL LUNG DISEASE [None]
